FAERS Safety Report 7263802-2 (Version None)
Quarter: 2011Q1

REPORT INFORMATION
  Report Type: 
  Country: None (occurrence: None)
  Receive Date: 20110130
  Receipt Date: 20101024
  Transmission Date: 20110831
  Serious: No
  Sender: FDA-Public Use
  Company Number: US-ABBOTT-10P-163-0682391-00

PATIENT
  Sex: Female
  Weight: 77.18 kg

DRUGS (12)
  1. HYDROCODONE BITARTRATE AND ACETAMINOPHEN [Concomitant]
     Indication: FIBROMYALGIA
  2. TIZANIDINE [Concomitant]
     Indication: MUSCLE SPASMS
     Route: 048
  3. HUMIRA [Suspect]
     Indication: RHEUMATOID ARTHRITIS
     Route: 058
     Dates: start: 20070901
  4. NEXIUM [Concomitant]
     Indication: GASTROOESOPHAGEAL REFLUX DISEASE
     Route: 048
     Dates: start: 20100901
  5. HYDROCODONE BITARTRATE AND ACETAMINOPHEN [Concomitant]
     Indication: ARTHRALGIA
     Dosage: 7.5/650
     Route: 048
  6. FOLIC ACID [Concomitant]
     Indication: VITAMIN SUPPLEMENTATION
     Route: 048
  7. PROMETHAZINE [Concomitant]
     Indication: NAUSEA
     Route: 048
  8. VITAMIN B-12 [Concomitant]
     Indication: FIBROMYALGIA
     Route: 058
  9. METHOTREXATE [Suspect]
     Indication: RHEUMATOID ARTHRITIS
     Route: 048
     Dates: end: 20101029
  10. ALPRAZOLAM [Concomitant]
     Indication: OESOPHAGEAL SPASM
     Route: 048
  11. BENADRYL [Concomitant]
     Indication: SEASONAL ALLERGY
     Route: 048
  12. AMITRIPTYLINE HCL [Concomitant]
     Indication: FIBROMYALGIA
     Route: 048

REACTIONS (13)
  - PALPITATIONS [None]
  - EAR PAIN [None]
  - VITREOUS FLOATERS [None]
  - PSORIASIS [None]
  - HEADACHE [None]
  - FATIGUE [None]
  - BLOOD PRESSURE INCREASED [None]
  - PRURITUS [None]
  - VISUAL IMPAIRMENT [None]
  - VISUAL ACUITY REDUCED [None]
  - RASH [None]
  - VOMITING [None]
  - CHEST PAIN [None]
